FAERS Safety Report 22200315 (Version 1)
Quarter: 2023Q2

REPORT INFORMATION
  Report Type: Spontaneous
  Country: US (occurrence: US)
  Receive Date: 20230412
  Receipt Date: 20230412
  Transmission Date: 20230722
  Serious: Yes (Other)
  Sender: FDA-Public Use
  Company Number: US-CORIUM, LLC-2023COR000094

PATIENT

DRUGS (1)
  1. AZSTARYS [Suspect]
     Active Substance: DEXMETHYLPHENIDATE HYDROCHLORIDE\SERDEXMETHYLPHENIDATE CHLORIDE
     Indication: Product used for unknown indication
     Dosage: 39.2 MG/7.8 MG, UNK
     Route: 048

REACTIONS (1)
  - Gastrointestinal haemorrhage [Recovered/Resolved]
